FAERS Safety Report 7848655-3 (Version None)
Quarter: 2011Q4

REPORT INFORMATION
  Report Type: 
  Country: None (occurrence: None)
  Receive Date: 20111026
  Receipt Date: 20111018
  Transmission Date: 20120403
  Serious: Yes (Hospitalization, Other)
  Sender: FDA-Public Use
  Company Number: US-BIOGENIDEC-2009BI015260

PATIENT
  Age: 58 Year
  Sex: Female

DRUGS (2)
  1. AVONEX [Suspect]
     Indication: MULTIPLE SCLEROSIS
     Route: 030
     Dates: start: 20030801, end: 20111001
  2. AVONEX [Suspect]
     Route: 030
     Dates: start: 20030601, end: 20030701

REACTIONS (2)
  - BREAST CANCER RECURRENT [None]
  - BREAST CANCER [None]
